FAERS Safety Report 20599011 (Version 1)
Quarter: 2022Q1

REPORT INFORMATION
  Report Type: Spontaneous
  Country: RO (occurrence: RO)
  Receive Date: 20220315
  Receipt Date: 20220315
  Transmission Date: 20220423
  Serious: Yes (Hospitalization)
  Sender: FDA-Public Use
  Company Number: RO-GILEAD-2022-0571833

PATIENT
  Sex: Female

DRUGS (1)
  1. BIKTARVY [Suspect]
     Active Substance: BICTEGRAVIR SODIUM\EMTRICITABINE\TENOFOVIR ALAFENAMIDE FUMARATE
     Indication: HIV infection
     Dosage: UNK
     Route: 065
     Dates: start: 202111, end: 202111

REACTIONS (6)
  - Face oedema [Recovered/Resolved]
  - Lip oedema [Recovered/Resolved]
  - Rash pruritic [Recovered/Resolved]
  - Sleep disorder [Unknown]
  - Nightmare [Unknown]
  - Feeling abnormal [Unknown]
